FAERS Safety Report 18306476 (Version 1)
Quarter: 2020Q3

REPORT INFORMATION
  Report Type: Spontaneous
  Country: CA (occurrence: CA)
  Receive Date: 20200924
  Receipt Date: 20200924
  Transmission Date: 20201103
  Serious: Yes (Other)
  Sender: FDA-Public Use
  Company Number: CA-JNJFOC-20200934774

PATIENT
  Age: 8 Year
  Sex: Male

DRUGS (5)
  1. TYLENOL [Suspect]
     Active Substance: ACETAMINOPHEN
     Indication: PYREXIA
     Route: 065
  2. MEFENAMIC ACID. [Suspect]
     Active Substance: MEFENAMIC ACID
     Indication: PRODUCT USED FOR UNKNOWN INDICATION
     Route: 065
  3. OMALIZUMAB. [Suspect]
     Active Substance: OMALIZUMAB
     Indication: CHRONIC SPONTANEOUS URTICARIA
     Route: 058
  4. OMALIZUMAB. [Suspect]
     Active Substance: OMALIZUMAB
     Route: 058
  5. OMALIZUMAB. [Suspect]
     Active Substance: OMALIZUMAB
     Route: 058

REACTIONS (21)
  - Weight increased [Not Recovered/Not Resolved]
  - Eczema [Not Recovered/Not Resolved]
  - Nervousness [Not Recovered/Not Resolved]
  - Pain [Not Recovered/Not Resolved]
  - Skin haemorrhage [Not Recovered/Not Resolved]
  - Erythema [Not Recovered/Not Resolved]
  - Seasonal allergy [Not Recovered/Not Resolved]
  - Skin disorder [Not Recovered/Not Resolved]
  - Therapeutic response unexpected [Not Recovered/Not Resolved]
  - Rash [Not Recovered/Not Resolved]
  - Product use issue [Not Recovered/Not Resolved]
  - Pruritus [Not Recovered/Not Resolved]
  - Skin plaque [Not Recovered/Not Resolved]
  - Infection [Not Recovered/Not Resolved]
  - Malaise [Not Recovered/Not Resolved]
  - Scratch [Not Recovered/Not Resolved]
  - Urticaria [Not Recovered/Not Resolved]
  - Bronchitis [Not Recovered/Not Resolved]
  - Dry skin [Not Recovered/Not Resolved]
  - Pyrexia [Not Recovered/Not Resolved]
  - Drug hypersensitivity [Not Recovered/Not Resolved]
